FAERS Safety Report 21853550 (Version 12)
Quarter: 2025Q3

REPORT INFORMATION
  Report Type: Report from Study
  Country: US (occurrence: US)
  Receive Date: 20230112
  Receipt Date: 20250930
  Transmission Date: 20251020
  Serious: Yes (Hospitalization, Other)
  Sender: TAKEDA
  Company Number: US-TAKEDA-2022TUS064667

PATIENT
  Age: 63 Year
  Sex: Male

DRUGS (11)
  1. RECOMBINATE [Suspect]
     Active Substance: ANTIHEMOPHILIC FACTOR, HUMAN RECOMBINANT
     Indication: Haemorrhage
  2. RECOMBINATE [Suspect]
     Active Substance: ANTIHEMOPHILIC FACTOR, HUMAN RECOMBINANT
  3. RECOMBINATE [Suspect]
     Active Substance: ANTIHEMOPHILIC FACTOR, HUMAN RECOMBINANT
     Dosage: 2160 INTERNATIONAL UNIT, QD
  4. RECOMBINATE [Suspect]
     Active Substance: ANTIHEMOPHILIC FACTOR, HUMAN RECOMBINANT
  5. RECOMBINATE [Suspect]
     Active Substance: ANTIHEMOPHILIC FACTOR, HUMAN RECOMBINANT
  6. ADVATE [Suspect]
     Active Substance: ANTIHEMOPHILIC FACTOR, HUMAN RECOMBINANT
     Indication: Product used for unknown indication
  7. ADVATE [Suspect]
     Active Substance: ANTIHEMOPHILIC FACTOR, HUMAN RECOMBINANT
  8. ADVATE [Suspect]
     Active Substance: ANTIHEMOPHILIC FACTOR, HUMAN RECOMBINANT
  9. ADVATE [Suspect]
     Active Substance: ANTIHEMOPHILIC FACTOR, HUMAN RECOMBINANT
  10. ADVATE [Suspect]
     Active Substance: ANTIHEMOPHILIC FACTOR, HUMAN RECOMBINANT
  11. ADVATE [Suspect]
     Active Substance: ANTIHEMOPHILIC FACTOR, HUMAN RECOMBINANT

REACTIONS (26)
  - Contusion [Unknown]
  - Haemarthrosis [Unknown]
  - Haemorrhage [Unknown]
  - Injury [Unknown]
  - Muscle haemorrhage [Not Recovered/Not Resolved]
  - Ecchymosis [Unknown]
  - Rectal haemorrhage [Not Recovered/Not Resolved]
  - Amyotrophic lateral sclerosis [Unknown]
  - Fall [Unknown]
  - Herpes zoster [Unknown]
  - Ocular hyperaemia [Unknown]
  - Oral pain [Unknown]
  - Glossodynia [Unknown]
  - Back pain [Unknown]
  - Poor venous access [Unknown]
  - Carpal tunnel syndrome [Unknown]
  - Peroneal nerve palsy [Unknown]
  - Limb injury [Unknown]
  - Forearm fracture [Unknown]
  - Peripheral swelling [Unknown]
  - Pain [Unknown]
  - Feeling hot [Unknown]
  - Swelling [Unknown]
  - Joint injury [Unknown]
  - Skin abrasion [Unknown]
  - Pain in extremity [Unknown]

NARRATIVE: CASE EVENT DATE: 20230105
